FAERS Safety Report 13507230 (Version 1)
Quarter: 2017Q2

REPORT INFORMATION
  Report Type: Spontaneous
  Country: US (occurrence: US)
  Receive Date: 20170503
  Receipt Date: 20170503
  Transmission Date: 20170830
  Serious: No
  Sender: FDA-Public Use
  Company Number: US-TEVA-748175ACC

PATIENT
  Sex: Female

DRUGS (1)
  1. MICONAZOLE 2 PERCENT [Suspect]
     Active Substance: MICONAZOLE

REACTIONS (4)
  - Expired product administered [Unknown]
  - Product expiration date issue [Unknown]
  - Product packaging quantity issue [Unknown]
  - Product lot number issue [Unknown]
